FAERS Safety Report 9352135 (Version 3)
Quarter: 2013Q4

REPORT INFORMATION
  Report Type: Spontaneous
  Country: US (occurrence: US)
  Receive Date: 20130617
  Receipt Date: 20131223
  Transmission Date: 20140711
  Serious: No
  Sender: FDA-Public Use
  Company Number: US-BIOGENIDEC-2013BI048391

PATIENT
  Age: 37 Year
  Sex: Female
  Weight: 77 kg

DRUGS (2)
  1. AVONEX [Suspect]
     Indication: MULTIPLE SCLEROSIS
     Route: 030
  2. AVONEX [Suspect]
     Indication: MULTIPLE SCLEROSIS
     Route: 030
     Dates: start: 20121221

REACTIONS (42)
  - Multiple sclerosis [Not Recovered/Not Resolved]
  - Back disorder [Unknown]
  - Urinary incontinence [Not Recovered/Not Resolved]
  - Blindness [Not Recovered/Not Resolved]
  - Dysarthria [Recovered/Resolved]
  - Aphasia [Unknown]
  - Thirst [Not Recovered/Not Resolved]
  - Regressive behaviour [Not Recovered/Not Resolved]
  - Fall [Recovered/Resolved]
  - Eating disorder [Not Recovered/Not Resolved]
  - Foot deformity [Not Recovered/Not Resolved]
  - Bladder disorder [Not Recovered/Not Resolved]
  - Hemiparesis [Not Recovered/Not Resolved]
  - Crying [Not Recovered/Not Resolved]
  - Inappropriate affect [Not Recovered/Not Resolved]
  - Weight increased [Not Recovered/Not Resolved]
  - Somnolence [Recovered/Resolved]
  - Tremor [Not Recovered/Not Resolved]
  - Band sensation [Not Recovered/Not Resolved]
  - Appetite disorder [Not Recovered/Not Resolved]
  - Dysphagia [Not Recovered/Not Resolved]
  - Constipation [Not Recovered/Not Resolved]
  - Burning sensation [Not Recovered/Not Resolved]
  - Libido decreased [Not Recovered/Not Resolved]
  - Musculoskeletal stiffness [Not Recovered/Not Resolved]
  - Fatigue [Not Recovered/Not Resolved]
  - Depression [Not Recovered/Not Resolved]
  - Pain in extremity [Not Recovered/Not Resolved]
  - Anxiety [Not Recovered/Not Resolved]
  - Muscle spasms [Not Recovered/Not Resolved]
  - Mood swings [Not Recovered/Not Resolved]
  - Affect lability [Not Recovered/Not Resolved]
  - Feeling abnormal [Not Recovered/Not Resolved]
  - Insomnia [Recovered/Resolved]
  - Muscular weakness [Not Recovered/Not Resolved]
  - Arthralgia [Not Recovered/Not Resolved]
  - Pruritus [Not Recovered/Not Resolved]
  - Muscle spasticity [Not Recovered/Not Resolved]
  - Dizziness [Not Recovered/Not Resolved]
  - Influenza like illness [Not Recovered/Not Resolved]
  - Asthenia [Not Recovered/Not Resolved]
  - Injection site pain [Unknown]
